FAERS Safety Report 7261025-4 (Version None)
Quarter: 2011Q1

REPORT INFORMATION
  Report Type: 
  Country: None (occurrence: None)
  Receive Date: 20110130
  Receipt Date: 20101123
  Transmission Date: 20110831
  Serious: No
  Sender: FDA-Public Use
  Company Number: US-ABBOTT-10P-163-0687559-00

PATIENT
  Age: 49 Year
  Sex: Male

DRUGS (7)
  1. METHOTREXATE [Concomitant]
     Indication: ARTHRITIS
  2. FOLIC ACID [Concomitant]
     Indication: VITAMIN SUPPLEMENTATION
  3. METFORMIN [Concomitant]
     Indication: DIABETES MELLITUS
  4. HUMIRA [Suspect]
     Indication: RHEUMATOID ARTHRITIS
     Dates: start: 20100501
  5. LISINOPRIL [Concomitant]
     Indication: BLOOD PRESSURE INCREASED
  6. PREDNISONE [Concomitant]
     Indication: ARTHRITIS
  7. HUMULIN R [Concomitant]
     Indication: DIABETES MELLITUS
     Dosage: 36 UNITS IN MORNING, 34 UNITS IN EVENING

REACTIONS (1)
  - INJECTION SITE PAIN [None]
